FAERS Safety Report 23223780 (Version 2)
Quarter: 2024Q2

REPORT INFORMATION
  Report Type: Spontaneous
  Country: NL (occurrence: NL)
  Receive Date: 20231124
  Receipt Date: 20240421
  Transmission Date: 20240716
  Serious: Yes (Death, Other)
  Sender: FDA-Public Use
  Company Number: NL-LRB-00924852

PATIENT
  Age: 78 Year
  Sex: Male
  Weight: 73 kg

DRUGS (3)
  1. DOCETAXEL [Suspect]
     Active Substance: DOCETAXEL\DOCETAXEL ANHYDROUS
     Indication: Prostate cancer metastatic
     Dosage: 102 MILLIGRAM, 3 WEEK (102 MG 1X 3 WEEKS)
     Route: 065
     Dates: start: 20230315, end: 20230315
  2. METAMIZOLE [Suspect]
     Active Substance: METAMIZOLE
     Indication: Cancer pain
     Dosage: 1000 MILLIGRAM, 3 TIMES A DAY (3DD2)
     Route: 065
     Dates: start: 20230202, end: 20230329
  3. PIPERACILLIN SODIUM\TAZOBACTAM SODIUM [Concomitant]
     Active Substance: PIPERACILLIN SODIUM\TAZOBACTAM SODIUM
     Indication: Product used for unknown indication
     Dosage: 1 DOSAGE FORM, FOUR TIMES/DAY (4500MG 4DD1)
     Route: 065

REACTIONS (2)
  - Neutropenic colitis [Fatal]
  - Febrile neutropenia [Fatal]
